FAERS Safety Report 5232612-X (Version None)
Quarter: 2007Q1

REPORT INFORMATION
  Report Type: 
  Country: None (occurrence: None)
  Receive Date: 20070205
  Receipt Date: 20070125
  Transmission Date: 20070707
  Serious: Yes (Hospitalization)
  Sender: FDA-Public Use
  Company Number: 2007-153707-NL

PATIENT
  Age: 82 Year
  Sex: Female

DRUGS (6)
  1. MIRTAZAPINE [Suspect]
     Indication: DEPRESSION
     Dosage: 30 MG
     Route: 048
     Dates: start: 20060117, end: 20061122
  2. FUROSEMIDE [Suspect]
     Dates: start: 19960101
  3. SPIRONOLACTONE [Suspect]
     Dates: start: 19860101
  4. CLONAZEPAM [Concomitant]
  5. DIGOXIN [Concomitant]
  6. OMEPRAZOLE [Concomitant]

REACTIONS (3)
  - CONFUSIONAL STATE [None]
  - EPILEPSY [None]
  - HYPONATRAEMIA [None]
